FAERS Safety Report 21312872 (Version 2)
Quarter: 2022Q4

REPORT INFORMATION
  Report Type: Spontaneous
  Country: FR (occurrence: FR)
  Receive Date: 20220909
  Receipt Date: 20221021
  Transmission Date: 20230112
  Serious: Yes (Other)
  Sender: FDA-Public Use
  Company Number: FR-ELI_LILLY_AND_COMPANY-FR202208016050

PATIENT
  Age: 77 Year
  Sex: Female
  Weight: 40 kg

DRUGS (3)
  1. TERIPARATIDE [Suspect]
     Active Substance: TERIPARATIDE
     Indication: Rheumatoid arthritis
     Dosage: UNK UNK, DAILY
     Route: 065
     Dates: start: 20220518, end: 20220822
  2. PFIZER-BIONTECH COVID-19 VACCINE [Suspect]
     Active Substance: TOZINAMERAN
     Indication: Immunisation
     Dosage: 1 DOSAGE FORM, UNKNOWN (4 DOSE)
     Route: 065
  3. CANDESARTAN CILEXETIL\HYDROCHLOROTHIAZIDE [Concomitant]
     Active Substance: CANDESARTAN CILEXETIL\HYDROCHLOROTHIAZIDE
     Indication: Blood pressure increased
     Dosage: UNK UNK, DAILY
     Route: 048

REACTIONS (7)
  - Hypotension [Recovered/Resolved]
  - Dizziness [Recovered/Resolved]
  - Dyspepsia [Recovered/Resolved]
  - Tremor [Recovered/Resolved]
  - Gastroenteritis [Recovered/Resolved]
  - Abdominal pain upper [Recovered/Resolved]
  - Dehydration [Recovered/Resolved]

NARRATIVE: CASE EVENT DATE: 20220810
